FAERS Safety Report 7414512-X (Version None)
Quarter: 2011Q2

REPORT INFORMATION
  Report Type: 
  Country: None (occurrence: None)
  Receive Date: 20110411
  Receipt Date: 20110411
  Transmission Date: 20111010
  Serious: Yes (Life-Threatening, Disabling, Congenital Anomaly)
  Sender: FDA-Public Use
  Company Number: None

PATIENT
  Age: 9 Month
  Sex: Female
  Weight: 3.1298 kg

DRUGS (2)
  1. EFFEXOR XR [Suspect]
     Indication: POSTPARTUM DEPRESSION
     Dosage: 37.5MG DAILY PO
     Route: 048
     Dates: start: 20100501, end: 20110408
  2. EFFEXOR XR [Suspect]
     Indication: GENERALISED ANXIETY DISORDER
     Dosage: 75MG DAILY PO
     Route: 048
     Dates: start: 20070725, end: 20091031

REACTIONS (6)
  - DRUG DOSE OMISSION [None]
  - PREGNANCY [None]
  - DRUG EXPOSURE DURING PREGNANCY [None]
  - DRUG EFFECT DECREASED [None]
  - SUICIDAL IDEATION [None]
  - POSTPARTUM DEPRESSION [None]
